FAERS Safety Report 7342683-2 (Version None)
Quarter: 2011Q1

REPORT INFORMATION
  Report Type: 
  Country: None (occurrence: None)
  Receive Date: 20110310
  Receipt Date: 20110308
  Transmission Date: 20110831
  Serious: Yes (Hospitalization)
  Sender: FDA-Public Use
  Company Number: IT-PFIZER INC-2011050106

PATIENT
  Age: 72 Year
  Sex: Female

DRUGS (2)
  1. AMLODIPINE [Concomitant]
     Dosage: 20 MG, UNK
     Route: 048
     Dates: start: 20110110
  2. SUTENT [Suspect]
     Indication: RENAL CANCER STAGE IV
     Dosage: 50 MG, 1X/DAY
     Route: 048
     Dates: start: 20110110, end: 20110228

REACTIONS (4)
  - ANURIA [None]
  - HYPOTHYROIDISM [None]
  - TRANSAMINASES INCREASED [None]
  - THROMBOCYTOPENIA [None]
